FAERS Safety Report 11414138 (Version 1)
Quarter: 2015Q3

REPORT INFORMATION
  Report Type: Spontaneous
  Country: FR (occurrence: FR)
  Receive Date: 20150824
  Receipt Date: 20150824
  Transmission Date: 20151125
  Serious: Yes (Hospitalization)
  Sender: FDA-Public Use
  Company Number: FR-PFIZER INC-2014042444

PATIENT
  Age: 86 Year
  Sex: Female

DRUGS (10)
  1. FRAGMINE [Concomitant]
     Active Substance: DALTEPARIN SODIUM
     Dosage: 5000 IU, 1X/DAY
     Route: 058
     Dates: start: 20131223, end: 20131231
  2. REMINYL [Concomitant]
     Active Substance: GALANTAMINE
  3. PARIET [Concomitant]
     Active Substance: RABEPRAZOLE SODIUM
  4. SINGULAIR [Concomitant]
     Active Substance: MONTELUKAST SODIUM
  5. CARDENSIEL [Concomitant]
     Active Substance: BISOPROLOL FUMARATE
  6. DALACINE [Suspect]
     Active Substance: CLINDAMYCIN HYDROCHLORIDE
     Dosage: 600 MG, 2X/DAY
     Route: 048
     Dates: start: 20131223, end: 20131225
  7. ODRIK [Concomitant]
     Active Substance: TRANDOLAPRIL
  8. STILNOX [Concomitant]
     Active Substance: ZOLPIDEM TARTRATE
  9. KARDEGIC [Concomitant]
     Active Substance: ASPIRIN LYSINE
  10. ALDACTAZINE [Concomitant]
     Active Substance: ALTHIAZIDE\SPIRONOLACTONE

REACTIONS (1)
  - Drug reaction with eosinophilia and systemic symptoms [Recovered/Resolved]

NARRATIVE: CASE EVENT DATE: 20131225
